FAERS Safety Report 6747772-9 (Version None)
Quarter: 2010Q2

REPORT INFORMATION
  Report Type: 
  Country: None (occurrence: None)
  Receive Date: 20100528
  Receipt Date: 20100518
  Transmission Date: 20101027
  Serious: Yes (Hospitalization, Other)
  Sender: FDA-Public Use
  Company Number: US-ELI_LILLY_AND_COMPANY-US201004006773

PATIENT
  Sex: Female
  Weight: 101.13 kg

DRUGS (12)
  1. BYETTA [Suspect]
     Indication: TYPE 2 DIABETES MELLITUS
     Dosage: 10 UG, UNKNOWN
     Dates: start: 20080928, end: 20100301
  2. METFORMIN HYDROCHLORIDE [Concomitant]
     Dosage: 1000 MG, 2/D
  3. METFORMIN HYDROCHLORIDE [Concomitant]
     Dosage: 500 MG, EACH EVENING
  4. JANUVIA [Concomitant]
     Dosage: 100 MG, DAILY (1/D)
     Dates: end: 20100401
  5. ADVAIR DISKUS 100/50 [Concomitant]
     Dosage: UNK, 2/D
     Route: 055
  6. XOPENEX [Concomitant]
     Dosage: UNK, AS NEEDED
  7. ALLEGRA [Concomitant]
     Dosage: 180 MG, DAILY (1/D)
  8. ZOLOFT [Concomitant]
     Dosage: 50 MG, DAILY (1/D)
  9. ALTACE [Concomitant]
     Dosage: 10 MG, 2/D
  10. SINGULAIR [Concomitant]
     Dosage: 10 MG, DAILY (1/D)
  11. CRESTOR [Concomitant]
     Dosage: 20 MG, DAILY (1/D)
  12. VENTOLIN HFA [Concomitant]
     Dosage: UNK, AS NEEDED

REACTIONS (3)
  - FATIGUE [None]
  - PANCREATITIS [None]
  - WEIGHT DECREASED [None]
